FAERS Safety Report 6202832-6 (Version None)
Quarter: 2009Q2

REPORT INFORMATION
  Report Type: 
  Country: None (occurrence: None)
  Receive Date: 20090520
  Receipt Date: 20090511
  Transmission Date: 20091009
  Serious: Yes (Disabling)
  Sender: FDA-Public Use
  Company Number: GXKR2009GB05677

PATIENT
  Age: 18 Year
  Sex: Female

DRUGS (3)
  1. METRONIDAZOLE [Suspect]
     Indication: PELVIC INFLAMMATORY DISEASE
     Dosage: 400 MG, TID
  2. OFLOXACIN [Suspect]
     Indication: PELVIC INFLAMMATORY DISEASE
     Dosage: 400 MG, BID
  3. CO-AMOXICLAV (AMOXICILLIN, CLAVULANATE POTASSIUM) [Concomitant]

REACTIONS (15)
  - AGITATION [None]
  - ANXIETY [None]
  - APHASIA [None]
  - CONFUSIONAL STATE [None]
  - DEPRESSED MOOD [None]
  - EXTENSOR PLANTAR RESPONSE [None]
  - FEAR [None]
  - FLAT AFFECT [None]
  - HALLUCINATION, AUDITORY [None]
  - HYPERREFLEXIA [None]
  - IMMOBILE [None]
  - NEGATIVE THOUGHTS [None]
  - PARANOIA [None]
  - PSYCHOTIC DISORDER DUE TO A GENERAL MEDICAL CONDITION [None]
  - PYREXIA [None]
